FAERS Safety Report 6012654-7 (Version None)
Quarter: 2008Q4

REPORT INFORMATION
  Report Type: 
  Country: None (occurrence: None)
  Receive Date: 20081218
  Receipt Date: 20081212
  Transmission Date: 20090506
  Serious: Yes (Other)
  Sender: FDA-Public Use
  Company Number: JP-MERCK-0812USA00400

PATIENT
  Age: 80 Year
  Sex: Female

DRUGS (2)
  1. COZAAR [Suspect]
     Indication: COMPLETED SUICIDE
     Route: 048
     Dates: start: 20081201, end: 20081201
  2. AMLODIN [Suspect]
     Indication: COMPLETED SUICIDE
     Route: 048
     Dates: start: 20081201, end: 20081201

REACTIONS (3)
  - BLOOD PRESSURE DECREASED [None]
  - OVERDOSE [None]
  - SUICIDAL IDEATION [None]
